FAERS Safety Report 22067612 (Version 1)
Quarter: 2023Q1

REPORT INFORMATION
  Report Type: Other
  Country: GB (occurrence: GB)
  Receive Date: 20230307
  Receipt Date: 20230307
  Transmission Date: 20230417
  Serious: Yes (Life-Threatening, Hospitalization, Other)
  Sender: FDA-Public Use
  Company Number: GB-CELLTRION INC.-2023GB004502

PATIENT

DRUGS (1)
  1. RITUXIMAB [Suspect]
     Active Substance: RITUXIMAB
     Indication: Product used for unknown indication
     Dosage: PHARMACEUTICAL DOSE FORM: INJECTION; ADDITIONAL INFORMATION ON DRUG: ADDITIONAL INFO: ROUTE:

REACTIONS (1)
  - Acute myocardial infarction [Recovering/Resolving]
